FAERS Safety Report 5079861-1 (Version None)
Quarter: 2006Q3

REPORT INFORMATION
  Report Type: 
  Country: None (occurrence: None)
  Receive Date: 20060815
  Receipt Date: 20060511
  Transmission Date: 20061208
  Serious: Yes (Hospitalization)
  Sender: FDA-Public Use
  Company Number: PHHO2006DE07693

PATIENT
  Age: 45 Year
  Sex: Male

DRUGS (6)
  1. GLEEVEC [Suspect]
     Indication: GLIOBLASTOMA
     Dosage: 600 MG, QD
     Route: 048
     Dates: start: 20060503
  2. LITALIR [Suspect]
     Indication: GLIOBLASTOMA
     Dosage: 1500 MG, QD
     Route: 048
     Dates: start: 20060412, end: 20060502
  3. LITALIR [Suspect]
     Dosage: 1000 MG, QD
     Route: 048
     Dates: start: 20060503
  4. TEGRETOL [Suspect]
     Indication: CONVULSION
     Dosage: 200 MG, QD
     Route: 048
     Dates: start: 20060214
  5. DEXAMETHASONE [Suspect]
     Indication: GLIOBLASTOMA
     Dosage: 4 MG, TID
     Route: 048
     Dates: start: 20050921
  6. PANTOZOL [Concomitant]
     Indication: GASTRIC ULCER

REACTIONS (2)
  - INTRACRANIAL PRESSURE INCREASED [None]
  - VOMITING [None]
